FAERS Safety Report 15452031 (Version 1)
Quarter: 2018Q4

REPORT INFORMATION
  Report Type: Spontaneous
  Country: IN (occurrence: IN)
  Receive Date: 20181001
  Receipt Date: 20181001
  Transmission Date: 20190204
  Serious: Yes (Hospitalization)
  Sender: FDA-Public Use
  Company Number: IN-009507513-1809IND012669

PATIENT
  Age: 17 Year
  Sex: Male
  Weight: 40.5 kg

DRUGS (20)
  1. BEDAQUILINE [Suspect]
     Active Substance: BEDAQUILINE
     Dosage: 200 MG, 2 TAB MONDAY-FRIDAY-WEDNESDAY
     Route: 048
     Dates: start: 201807, end: 20180804
  2. CAPREOMYCIN [Suspect]
     Active Substance: CAPREOMYCIN
     Indication: PULMONARY TUBERCULOSIS
     Dosage: 600 MG, DAILY
     Route: 042
     Dates: start: 20180227
  3. CAPREOMYCIN [Suspect]
     Active Substance: CAPREOMYCIN
     Dosage: 600 MG, MONDAY-FRIDAY
     Route: 042
     Dates: start: 20180730, end: 20180803
  4. LINEZOLID. [Suspect]
     Active Substance: LINEZOLID
     Indication: PULMONARY TUBERCULOSIS
     Dosage: 600 MG, QD
     Route: 048
     Dates: start: 20180227
  5. LINEZOLID. [Suspect]
     Active Substance: LINEZOLID
     Dosage: 600 MG, TID
     Route: 048
     Dates: start: 201807, end: 20180804
  6. CLOFAZIMINE [Suspect]
     Active Substance: CLOFAZIMINE
     Indication: PULMONARY TUBERCULOSIS
     Dosage: 100 MG, QD
     Dates: start: 20180227
  7. BEDAQUILINE [Suspect]
     Active Substance: BEDAQUILINE
     Indication: PULMONARY TUBERCULOSIS
     Dosage: 200 MG, TIW
     Route: 048
     Dates: start: 20180321
  8. CYCLOSERINE. [Suspect]
     Active Substance: CYCLOSERINE
     Indication: PULMONARY TUBERCULOSIS
     Dosage: 500 MG, DAILY
     Dates: start: 20180227
  9. CLOFAZIMINE [Suspect]
     Active Substance: CLOFAZIMINE
     Dosage: 50 MG, 2 BD
     Route: 048
     Dates: start: 201807, end: 20180804
  10. DELAMANID [Suspect]
     Active Substance: DELAMANID
     Dosage: 50 MG, 2 BD
     Route: 048
     Dates: start: 2018
  11. BEDAQUILINE [Suspect]
     Active Substance: BEDAQUILINE
     Dosage: 200 MG, 2 TAB MONDAY-WEDNESDAY-FRIDAY
     Route: 048
     Dates: start: 201808
  12. CAPREOMYCIN [Suspect]
     Active Substance: CAPREOMYCIN
     Dosage: 600 MG, MONDAY-FRIDAY
     Route: 042
     Dates: start: 20180806, end: 20180810
  13. LINEZOLID. [Suspect]
     Active Substance: LINEZOLID
     Dosage: 600 MG, 1/2 BD
     Route: 048
     Dates: start: 201808
  14. CLOFAZIMINE [Suspect]
     Active Substance: CLOFAZIMINE
     Dosage: 50 MG, 4 BD
     Route: 048
     Dates: start: 201808
  15. IMIPENEM AND CILASTATIN [Suspect]
     Active Substance: CILASTATIN SODIUM\IMIPENEM
     Indication: PULMONARY TUBERCULOSIS
     Dosage: 2 G, QD
     Dates: start: 20180228
  16. AMOXICILLIN (+) CLAVULANATE POTASSIUM [Concomitant]
     Active Substance: AMOXICILLIN\CLAVULANATE POTASSIUM
     Indication: PULMONARY TUBERCULOSIS
     Dosage: UNK
     Dates: start: 20180228
  17. PREGABALIN. [Concomitant]
     Active Substance: PREGABALIN
     Indication: NEUROPATHY PERIPHERAL
     Dosage: UNK
     Dates: start: 20180226
  18. IMIPENEM AND CILASTATIN [Suspect]
     Active Substance: CILASTATIN SODIUM\IMIPENEM
     Dosage: 1 G, BID
     Route: 042
     Dates: start: 201807
  19. DELAMANID [Suspect]
     Active Substance: DELAMANID
     Indication: PULMONARY TUBERCULOSIS
     Dosage: 200 MG, QD
     Route: 048
     Dates: start: 20180321
  20. PYRIDOXINE [Concomitant]
     Active Substance: PYRIDOXINE
     Indication: NEUROPATHY PERIPHERAL
     Dosage: UNK
     Dates: start: 20180226

REACTIONS (3)
  - Haemoglobin decreased [Unknown]
  - Bacterial infection [Recovered/Resolved with Sequelae]
  - Red blood cell count decreased [Unknown]

NARRATIVE: CASE EVENT DATE: 2018
